FAERS Safety Report 9929188 (Version 2)
Quarter: 2014Q1

REPORT INFORMATION
  Report Type: Spontaneous
  Country: US (occurrence: US)
  Receive Date: 20140227
  Receipt Date: 20140227
  Transmission Date: 20141002
  Serious: Yes (Hospitalization, Other)
  Sender: FDA-Public Use
  Company Number: US-SANOFI-AVENTIS-CERZ-1002460

PATIENT
  Age: 29 Year
  Sex: Female
  Weight: 76.5 kg

DRUGS (13)
  1. CEREZYME [Suspect]
     Indication: GAUCHER^S DISEASE
     Dosage: 4800 U, Q2W DOSE:60 UNIT(S)/KILOGRAM BODYWEIGHT
     Route: 042
     Dates: start: 20100108
  2. CEREZYME [Suspect]
     Indication: GAUCHER^S DISEASE
     Dosage: DOSE:60 UNIT(S)/KILOGRAM BODYWEIGHT
     Route: 042
     Dates: start: 200101, end: 200907
  3. CEREZYME [Suspect]
     Indication: GAUCHER^S DISEASE
     Dosage: DOSE:30 UNIT(S)/KILOGRAM BODYWEIGHT
     Route: 042
     Dates: start: 201002
  4. CEREZYME [Suspect]
     Indication: GAUCHER^S DISEASE
     Dosage: DOSE:60 UNIT(S)/KILOGRAM BODYWEIGHT
     Route: 042
     Dates: start: 20100501
  5. CEREZYME [Suspect]
     Indication: GAUCHER^S DISEASE
     Dosage: DOSE:30 UNIT(S)/KILOGRAM BODYWEIGHT
     Route: 042
     Dates: start: 201110
  6. CEREZYME [Suspect]
     Indication: GAUCHER^S DISEASE
     Dosage: DOSE:57 UNIT(S)/KILOGRAM BODYWEIGHT
     Route: 042
     Dates: start: 201203
  7. PENICILLIN NOS [Concomitant]
     Dosage: UNK
  8. DIPHENHYDRAMINE [Concomitant]
     Dosage: UNK
  9. NORMAL SALINE [Concomitant]
     Dosage: UNK
  10. SODIUM CHLORIDE [Concomitant]
     Dosage: UNK
  11. WATER FOR INJECTION [Concomitant]
     Dosage: UNK
  12. EPIPEN [Concomitant]
     Dosage: UNK
  13. CYMBALTA [Concomitant]
     Dosage: UNK

REACTIONS (6)
  - Pneumonia [Recovered/Resolved]
  - Urinary tract infection [Unknown]
  - Pollakiuria [Unknown]
  - Dysuria [Unknown]
  - Abdominal pain upper [Unknown]
  - Prothrombin time prolonged [Unknown]
